FAERS Safety Report 13896793 (Version 1)
Quarter: 2017Q3

REPORT INFORMATION
  Report Type: Spontaneous
  Country: US (occurrence: US)
  Receive Date: 20170822
  Receipt Date: 20170822
  Transmission Date: 20171127
  Serious: No
  Sender: FDA-Public Use
  Company Number: None

PATIENT
  Age: 65 Year
  Sex: Male
  Weight: 72 kg

DRUGS (5)
  1. CLONAZEPAM. [Suspect]
     Active Substance: CLONAZEPAM
     Indication: POST-TRAUMATIC STRESS DISORDER
     Route: 048
  2. CLONAZEPAM. [Suspect]
     Active Substance: CLONAZEPAM
     Indication: HYPERVIGILANCE
     Route: 048
  3. PROVENTIL [Concomitant]
     Active Substance: ALBUTEROL
  4. CLONAZEPAM. [Suspect]
     Active Substance: CLONAZEPAM
     Indication: PANIC ATTACK
     Route: 048
  5. DULERA [Concomitant]
     Active Substance: FORMOTEROL FUMARATE DIHYDRATE\MOMETASONE FUROATE

REACTIONS (51)
  - Hypoaesthesia [None]
  - Muscle twitching [None]
  - Hyperaesthesia [None]
  - Insomnia [None]
  - Anxiety [None]
  - Agoraphobia [None]
  - Hallucination [None]
  - Memory impairment [None]
  - Musculoskeletal stiffness [None]
  - Tooth disorder [None]
  - Paraesthesia [None]
  - Influenza like illness [None]
  - Tremor [None]
  - Photophobia [None]
  - Parosmia [None]
  - Obsessive thoughts [None]
  - Aggression [None]
  - Asthenia [None]
  - Dyskinesia [None]
  - Balance disorder [None]
  - Hyperacusis [None]
  - Depression [None]
  - Sensory disturbance [None]
  - Decreased appetite [None]
  - Weight abnormal [None]
  - Flushing [None]
  - Pruritus [None]
  - Withdrawal syndrome [None]
  - Panic attack [None]
  - Social anxiety disorder [None]
  - Depersonalisation/derealisation disorder [None]
  - Fatigue [None]
  - Illusion [None]
  - Paranoia [None]
  - Irritability [None]
  - Disturbance in attention [None]
  - Electric shock [None]
  - Dizziness [None]
  - Dysgeusia [None]
  - Palpitations [None]
  - Respiratory rate increased [None]
  - Derealisation [None]
  - Pain [None]
  - Joint stiffness [None]
  - Tic [None]
  - Hyperhidrosis [None]
  - Headache [None]
  - Dry mouth [None]
  - Rash [None]
  - Impaired driving ability [None]
  - Loss of personal independence in daily activities [None]
